FAERS Safety Report 17009112 (Version 1)
Quarter: 2019Q4

REPORT INFORMATION
  Report Type: Spontaneous
  Country: US (occurrence: US)
  Receive Date: 20191108
  Receipt Date: 20191108
  Transmission Date: 20200122
  Serious: Yes (Death, Hospitalization)
  Sender: FDA-Public Use
  Company Number: US-MYLANLABS-2019M1105927

PATIENT
  Age: 53 Year
  Sex: Female

DRUGS (3)
  1. HYDROXYCHLOROQUINE [Suspect]
     Active Substance: HYDROXYCHLOROQUINE
     Indication: MIXED CONNECTIVE TISSUE DISEASE
     Route: 065
  2. PREDNISONE. [Suspect]
     Active Substance: PREDNISONE
     Indication: MIXED CONNECTIVE TISSUE DISEASE
     Route: 065
  3. RITUXIMAB. [Suspect]
     Active Substance: RITUXIMAB
     Indication: MIXED CONNECTIVE TISSUE DISEASE
     Route: 065

REACTIONS (5)
  - Aspergillus infection [Fatal]
  - Escherichia infection [Fatal]
  - Haemophagocytic lymphohistiocytosis [Fatal]
  - Pseudomonas infection [Fatal]
  - Multiple organ dysfunction syndrome [Fatal]
